FAERS Safety Report 17476009 (Version 1)
Quarter: 2020Q1

REPORT INFORMATION
  Report Type: Spontaneous
  Country: MX (occurrence: MX)
  Receive Date: 20200228
  Receipt Date: 20200228
  Transmission Date: 20200409
  Serious: Yes (Other)
  Sender: FDA-Public Use
  Company Number: MX-SUPERNUS PHARMACEUTICALS, INC.-2020SUP00036

PATIENT
  Sex: Male
  Weight: 27.5 kg

DRUGS (2)
  1. MELATONIN [Concomitant]
     Active Substance: MELATONIN
     Dosage: UNK
     Route: 060
     Dates: end: 20200215
  2. KALLION XR [Suspect]
     Active Substance: OXCARBAZEPINE
     Indication: PARTIAL SEIZURES
     Dosage: 300 MG, 1X/DAY (EVERY 24 HOURS)
     Route: 048
     Dates: start: 20180626

REACTIONS (6)
  - Liver disorder [Unknown]
  - Pancreatic disorder [Unknown]
  - Electroencephalogram abnormal [Not Recovered/Not Resolved]
  - Amylase increased [Unknown]
  - Brain injury [Unknown]
  - Drug ineffective [Not Recovered/Not Resolved]
